FAERS Safety Report 25147069 (Version 1)
Quarter: 2025Q2

REPORT INFORMATION
  Report Type: Spontaneous
  Country: CA (occurrence: CA)
  Receive Date: 20250401
  Receipt Date: 20250401
  Transmission Date: 20250717
  Serious: Yes (Death, Life-Threatening, Hospitalization, Disabling, Other)
  Sender: PURDUE
  Company Number: CA-PURDUE-USA-2025-0316411

PATIENT
  Age: 43 Year
  Sex: Female
  Weight: 68 kg

DRUGS (84)
  1. OXYCODONE HYDROCHLORIDE [Suspect]
     Active Substance: OXYCODONE HYDROCHLORIDE
     Indication: Product used for unknown indication
     Route: 048
  2. OXYCODONE HYDROCHLORIDE [Suspect]
     Active Substance: OXYCODONE HYDROCHLORIDE
     Route: 048
  3. OXYCODONE HYDROCHLORIDE [Suspect]
     Active Substance: OXYCODONE HYDROCHLORIDE
     Dosage: 20 MILLIGRAM, WEEKLY
     Route: 048
  4. OXYCODONE HYDROCHLORIDE [Suspect]
     Active Substance: OXYCODONE HYDROCHLORIDE
     Route: 065
  5. OXYCODONE HYDROCHLORIDE [Suspect]
     Active Substance: OXYCODONE HYDROCHLORIDE
     Route: 013
  6. OXYCODONE HYDROCHLORIDE [Suspect]
     Active Substance: OXYCODONE HYDROCHLORIDE
     Route: 058
  7. OXYCODONE HYDROCHLORIDE [Suspect]
     Active Substance: OXYCODONE HYDROCHLORIDE
     Dosage: 15 MILLIGRAM, 1 EVERY 1 DAYS
     Route: 048
  8. OXYCODONE HYDROCHLORIDE [Suspect]
     Active Substance: OXYCODONE HYDROCHLORIDE
     Dosage: 15 MILLIGRAM, 1 EVERY 1 DAYS
     Route: 048
  9. OXYCODONE HYDROCHLORIDE [Suspect]
     Active Substance: OXYCODONE HYDROCHLORIDE
     Dosage: 25 MILLIGRAM, 1 EVERY 1 DAYS
     Route: 048
  10. OXYCODONE HYDROCHLORIDE [Suspect]
     Active Substance: OXYCODONE HYDROCHLORIDE
     Dosage: 20 MILLIGRAM, 1 EVERY 1 DAYS
     Route: 048
  11. OXYCODONE HYDROCHLORIDE [Suspect]
     Active Substance: OXYCODONE HYDROCHLORIDE
     Dosage: 20 MILLIGRAM, 1 EVERY 1 DAYS
     Route: 065
  12. OXYCODONE HYDROCHLORIDE [Suspect]
     Active Substance: OXYCODONE HYDROCHLORIDE
     Route: 065
  13. OXYCODONE HYDROCHLORIDE [Suspect]
     Active Substance: OXYCODONE HYDROCHLORIDE
     Route: 058
  14. OXYCODONE HYDROCHLORIDE [Suspect]
     Active Substance: OXYCODONE HYDROCHLORIDE
     Route: 003
  15. ALENDRONIC ACID [Suspect]
     Active Substance: ALENDRONIC ACID
     Indication: Rheumatoid arthritis
     Route: 065
  16. ANAKINRA [Suspect]
     Active Substance: ANAKINRA
     Indication: Product used for unknown indication
     Route: 048
  17. ANAKINRA [Suspect]
     Active Substance: ANAKINRA
     Route: 065
  18. ANAKINRA [Suspect]
     Active Substance: ANAKINRA
     Route: 065
  19. ANAKINRA [Suspect]
     Active Substance: ANAKINRA
     Route: 048
  20. ANAKINRA [Suspect]
     Active Substance: ANAKINRA
     Route: 065
  21. LEFLUNOMIDE [Suspect]
     Active Substance: LEFLUNOMIDE
     Indication: Rheumatoid arthritis
     Dosage: 20 MILLIGRAM, EVERY 1 DAYS
     Route: 065
  22. LEFLUNOMIDE [Suspect]
     Active Substance: LEFLUNOMIDE
     Route: 065
  23. LEFLUNOMIDE [Suspect]
     Active Substance: LEFLUNOMIDE
     Route: 048
  24. LEFLUNOMIDE [Suspect]
     Active Substance: LEFLUNOMIDE
     Route: 065
  25. LEFLUNOMIDE [Suspect]
     Active Substance: LEFLUNOMIDE
     Route: 048
  26. LEFLUNOMIDE [Suspect]
     Active Substance: LEFLUNOMIDE
     Route: 065
  27. LEFLUNOMIDE [Suspect]
     Active Substance: LEFLUNOMIDE
     Route: 048
  28. LEFLUNOMIDE [Suspect]
     Active Substance: LEFLUNOMIDE
     Route: 048
  29. CETIRIZINE [Suspect]
     Active Substance: CETIRIZINE HYDROCHLORIDE
     Indication: Product used for unknown indication
     Dosage: 20 MILLIGRAM, EVERY 1 DAYS
     Route: 048
  30. CETIRIZINE [Suspect]
     Active Substance: CETIRIZINE HYDROCHLORIDE
     Route: 065
  31. CETIRIZINE [Suspect]
     Active Substance: CETIRIZINE HYDROCHLORIDE
     Route: 048
  32. CETIRIZINE [Suspect]
     Active Substance: CETIRIZINE HYDROCHLORIDE
     Dosage: 10 MILLIGRAM, DAILY (1 EVERY 1 DAYS)
     Route: 065
  33. CETIRIZINE [Suspect]
     Active Substance: CETIRIZINE HYDROCHLORIDE
     Route: 065
  34. CETIRIZINE [Suspect]
     Active Substance: CETIRIZINE HYDROCHLORIDE
     Route: 058
  35. CORTISONE [Suspect]
     Active Substance: CORTISONE
     Indication: Rheumatoid arthritis
     Route: 016
  36. COSENTYX [Suspect]
     Active Substance: SECUKINUMAB
     Indication: Psoriatic arthropathy
     Route: 065
  37. DEXAMETHASONE [Suspect]
     Active Substance: DEXAMETHASONE
     Indication: Product used for unknown indication
     Dosage: 1 GRAM, BID (2 EVERY 1 DAY)
     Route: 065
  38. DEXAMETHASONE [Suspect]
     Active Substance: DEXAMETHASONE
     Route: 016
  39. DEXAMETHASONE [Suspect]
     Active Substance: DEXAMETHASONE
     Dosage: 25 MILLIGRAM, DAILY
     Route: 048
  40. DEXAMETHASONE [Suspect]
     Active Substance: DEXAMETHASONE
     Route: 065
  41. DEXAMETHASONE [Suspect]
     Active Substance: DEXAMETHASONE
     Dosage: 15 MILLIGRAM, DAILY (1 EVERY 1 DAYS)
     Route: 048
  42. DICLOFENAC [Suspect]
     Active Substance: DICLOFENAC
     Indication: Product used for unknown indication
     Route: 065
  43. DICLOFENAC [Suspect]
     Active Substance: DICLOFENAC
     Route: 065
  44. DICLOFENAC DIETHYLAMINE [Suspect]
     Active Substance: DICLOFENAC DIETHYLAMINE
     Indication: Product used for unknown indication
     Route: 048
  45. DICLOFENAC DIETHYLAMINE [Suspect]
     Active Substance: DICLOFENAC DIETHYLAMINE
     Route: 003
  46. DICLOFENAC DIETHYLAMINE [Suspect]
     Active Substance: DICLOFENAC DIETHYLAMINE
     Route: 065
  47. DICLOFENAC POTASSIUM [Suspect]
     Active Substance: DICLOFENAC POTASSIUM
     Indication: Product used for unknown indication
     Route: 047
  48. ERELZI [Suspect]
     Active Substance: ETANERCEPT-SZZS
     Indication: Rheumatoid arthritis
     Route: 058
  49. ERELZI [Suspect]
     Active Substance: ETANERCEPT-SZZS
     Route: 065
  50. FOLIC ACID [Suspect]
     Active Substance: FOLIC ACID
     Indication: Rheumatoid arthritis
     Route: 048
  51. FOLIC ACID [Suspect]
     Active Substance: FOLIC ACID
     Route: 048
  52. FOLIC ACID [Suspect]
     Active Substance: FOLIC ACID
     Route: 065
  53. FOLIC ACID [Suspect]
     Active Substance: FOLIC ACID
     Route: 065
  54. FOLIC ACID [Suspect]
     Active Substance: FOLIC ACID
     Route: 065
  55. HYRIMOZ [Suspect]
     Active Substance: ADALIMUMAB-ADAZ
     Indication: Rheumatoid arthritis
     Route: 058
  56. HUMAN IMMUNOGLOBULIN G [Suspect]
     Active Substance: HUMAN IMMUNOGLOBULIN G
     Indication: Product used for unknown indication
     Route: 058
  57. HUMAN IMMUNOGLOBULIN G [Suspect]
     Active Substance: HUMAN IMMUNOGLOBULIN G
     Route: 058
  58. HUMAN IMMUNOGLOBULIN G [Suspect]
     Active Substance: HUMAN IMMUNOGLOBULIN G
     Dosage: 40 MILLIGRAM, (EVERY 2 WEEKS )
     Route: 058
  59. HUMAN IMMUNOGLOBULIN G [Suspect]
     Active Substance: HUMAN IMMUNOGLOBULIN G
     Route: 058
  60. HUMAN IMMUNOGLOBULIN G [Suspect]
     Active Substance: HUMAN IMMUNOGLOBULIN G
     Route: 065
  61. HUMAN IMMUNOGLOBULIN G [Suspect]
     Active Substance: HUMAN IMMUNOGLOBULIN G
     Route: 048
  62. LEVOCETIRIZINE HYDROCHLORIDE [Suspect]
     Active Substance: LEVOCETIRIZINE HYDROCHLORIDE
     Indication: Product used for unknown indication
     Route: 042
  63. LEVOCETIRIZINE HYDROCHLORIDE [Suspect]
     Active Substance: LEVOCETIRIZINE HYDROCHLORIDE
     Route: 058
  64. LEVOCETIRIZINE HYDROCHLORIDE [Suspect]
     Active Substance: LEVOCETIRIZINE HYDROCHLORIDE
     Route: 041
  65. LYRICA [Suspect]
     Active Substance: PREGABALIN
     Indication: Product used for unknown indication
     Route: 065
  66. METHOTREXATE [Suspect]
     Active Substance: METHOTREXATE
     Indication: Rheumatoid arthritis
     Dosage: 10 MILLIGRAM, Q24H
     Route: 048
  67. METHOTREXATE [Suspect]
     Active Substance: METHOTREXATE
     Route: 005
  68. METHOTREXATE [Suspect]
     Active Substance: METHOTREXATE
     Route: 065
  69. METHOTREXATE [Suspect]
     Active Substance: METHOTREXATE
     Route: 065
  70. METHOTREXATE [Suspect]
     Active Substance: METHOTREXATE
     Route: 065
  71. METHOTREXATE [Suspect]
     Active Substance: METHOTREXATE
     Route: 065
  72. METHOTREXATE [Suspect]
     Active Substance: METHOTREXATE
     Route: 065
  73. METHOTREXATE [Suspect]
     Active Substance: METHOTREXATE
     Route: 058
  74. METHOTREXATE [Suspect]
     Active Substance: METHOTREXATE
     Route: 065
  75. METHOTREXATE [Suspect]
     Active Substance: METHOTREXATE
     Dosage: 50 MILLIGRAM, WEEKLY
     Route: 058
  76. RITUXIMAB [Suspect]
     Active Substance: RITUXIMAB
     Indication: Rheumatoid arthritis
     Route: 048
  77. RITUXIMAB [Suspect]
     Active Substance: RITUXIMAB
     Route: 065
  78. MYCOPHENOLATE MOFETIL [Suspect]
     Active Substance: MYCOPHENOLATE MOFETIL
     Indication: Psoriatic arthropathy
     Route: 065
  79. MYCOPHENOLATE MOFETIL [Suspect]
     Active Substance: MYCOPHENOLATE MOFETIL
     Indication: Product used for unknown indication
     Route: 048
  80. TRIAMCINOLONE [Suspect]
     Active Substance: TRIAMCINOLONE
     Indication: Rheumatoid arthritis
     Route: 065
  81. TRIAMCINOLONE [Suspect]
     Active Substance: TRIAMCINOLONE
     Route: 048
  82. VOLTAREN [Suspect]
     Active Substance: DICLOFENAC SODIUM
     Indication: Product used for unknown indication
     Route: 047
  83. VOLTAREN [Suspect]
     Active Substance: DICLOFENAC SODIUM
     Route: 065
  84. VITAMIN D3 [Concomitant]
     Active Substance: CHOLECALCIFEROL
     Indication: Product used for unknown indication
     Route: 065

REACTIONS (16)
  - Adrenal insufficiency [Fatal]
  - Contraindicated product administered [Fatal]
  - Drug tolerance [Fatal]
  - Exposure during pregnancy [Fatal]
  - Hypokalaemia [Fatal]
  - Immunodeficiency [Fatal]
  - Intentional product use issue [Fatal]
  - Joint destruction [Fatal]
  - Loss of consciousness [Fatal]
  - Maternal exposure during pregnancy [Fatal]
  - Off label use [Fatal]
  - Polyarthritis [Fatal]
  - Pregnancy [Fatal]
  - Product use in unapproved indication [Fatal]
  - Therapeutic product effect decreased [Fatal]
  - Therapy non-responder [Fatal]
